FAERS Safety Report 8116869-3 (Version None)
Quarter: 2012Q1

REPORT INFORMATION
  Report Type: 
  Country: None (occurrence: None)
  Receive Date: 20120206
  Receipt Date: 20120203
  Transmission Date: 20120608
  Serious: Yes (Other)
  Sender: FDA-Public Use
  Company Number: PHFR2011IE006777

PATIENT
  Sex: Female

DRUGS (11)
  1. HALOPERIDOL [Concomitant]
     Dosage: 2 MG, NOCTE
  2. CLOZARIL [Suspect]
     Dosage: 175 MG
     Route: 048
  3. CITALOPRAM HYDROBROMIDE [Concomitant]
     Dosage: 30 MG, QD
  4. CLOZARIL [Suspect]
     Indication: SCHIZOPHRENIA
     Route: 048
     Dates: start: 19990319
  5. CLOZARIL [Suspect]
     Dosage: 100 MG
     Route: 048
  6. ZOPLICONE [Concomitant]
     Dosage: 3.75 MG
  7. FUROSEMIDE [Concomitant]
     Dosage: 40 MG, BID
  8. CLOZARIL [Suspect]
     Dosage: 300 MG, QD
     Route: 048
  9. VERTIGON [Concomitant]
     Dosage: 60 MG, NOCTE
  10. CLOZARIL [Suspect]
     Dosage: 325 MG, QD
     Route: 048
  11. QWELLS [Concomitant]

REACTIONS (4)
  - ANTIPSYCHOTIC DRUG LEVEL INCREASED [None]
  - CHRONIC OBSTRUCTIVE PULMONARY DISEASE [None]
  - MENTAL DISORDER [None]
  - CONVULSION [None]
